FAERS Safety Report 5917314-6 (Version None)
Quarter: 2008Q4

REPORT INFORMATION
  Report Type: 
  Country: None (occurrence: None)
  Receive Date: 20081014
  Receipt Date: 20081003
  Transmission Date: 20090506
  Serious: Yes (Hospitalization)
  Sender: FDA-Public Use
  Company Number: US-ELI_LILLY_AND_COMPANY-US200810000831

PATIENT
  Sex: Female

DRUGS (6)
  1. FORTEO [Suspect]
     Indication: BONE DISORDER
     Dates: start: 20080501
  2. PROTONIX [Concomitant]
  3. NIFEREX [Concomitant]
  4. PACERONE [Concomitant]
  5. WARFARIN SODIUM [Concomitant]
  6. METOPROLOL TARTRATE [Concomitant]

REACTIONS (2)
  - FRACTURE [None]
  - MEDICAL DEVICE REMOVAL [None]
